FAERS Safety Report 21000169 (Version 1)
Quarter: 2022Q2

REPORT INFORMATION
  Report Type: Spontaneous
  Country: DE (occurrence: DE)
  Receive Date: 20220623
  Receipt Date: 20220623
  Transmission Date: 20220721
  Serious: Yes (Hospitalization, Other)
  Sender: FDA-Public Use
  Company Number: None

PATIENT
  Age: 68 Year
  Sex: Male

DRUGS (8)
  1. CLOZAPINE [Suspect]
     Active Substance: CLOZAPINE
     Indication: Tremor
     Dosage: 0-150 MG PER TAG,DURATION 118 DAYS
     Route: 048
     Dates: start: 20220101, end: 20220429
  2. FOLIC ACID [Concomitant]
     Active Substance: FOLIC ACID
     Indication: Anaemia
     Dosage: 5 MG PER DAY; PO; FOR MONTHS,, FREQUENCY TIME 1 DAYS
     Route: 048
  3. CALCIUM [Concomitant]
     Active Substance: CALCIUM
     Indication: Anaemia
     Dosage: 400 IU (INTERNATIONAL UNIT) DAILY; 400 IU PER DAY; FOR MONTHS - B.A.W.
  4. MOVICOL [Concomitant]
     Active Substance: POLYETHYLENE GLYCOL 3350\POTASSIUM CHLORIDE\SODIUM BICARBONATE\SODIUM CHLORIDE
     Indication: Constipation
     Dosage: 2 BAGS PER DAY, FOR MONTHS,UNIT DOSE 2 DF, FREQUENCY TIME 1 DAYS
  5. NALOXONE HYDROCHLORIDE\OXYCODONE HYDROCHLORIDE [Concomitant]
     Active Substance: NALOXONE HYDROCHLORIDE\OXYCODONE HYDROCHLORIDE
     Indication: Analgesic therapy
     Dosage: 30/15 MG FOR YEARS
  6. NALOXONE HYDROCHLORIDE\OXYCODONE HYDROCHLORIDE [Concomitant]
     Active Substance: NALOXONE HYDROCHLORIDE\OXYCODONE HYDROCHLORIDE
     Indication: Rheumatic disorder
  7. TORSEMIDE [Concomitant]
     Active Substance: TORSEMIDE
     Indication: Diuretic therapy
     Dosage: 20 MG PER DAY, PO; FOR MONTHS,FREQUENCY TIME 1 DAYS
     Route: 048
  8. LORAZEPAM [Concomitant]
     Active Substance: LORAZEPAM
     Indication: Product used for unknown indication
     Dosage: 1.5 MILLIGRAM DAILY; 1.5 MG PO PER DAY
     Route: 048
     Dates: start: 20220101

REACTIONS (6)
  - Atrial fibrillation [Recovered/Resolved]
  - Pallor [Recovered/Resolved]
  - C-reactive protein increased [Recovered/Resolved]
  - Atrial flutter [Recovered/Resolved]
  - General physical health deterioration [Recovered/Resolved]
  - Leukopenia [Recovered/Resolved]

NARRATIVE: CASE EVENT DATE: 20220429
